FAERS Safety Report 7820150 (Version 4)
Quarter: 2013Q3

REPORT INFORMATION
  Report Type: Spontaneous
  Country: US (occurrence: US)
  Receive Date: 20110221
  Receipt Date: 20130812
  Transmission Date: 20140515
  Serious: Yes (Hospitalization, Other)
  Sender: FDA-Public Use
  Company Number: US-ROCHE-735727

PATIENT
  Age: 23 Year
  Sex: Female
  Weight: 72.6 kg

DRUGS (2)
  1. ACCUTANE [Suspect]
     Indication: ACNE
     Route: 065
     Dates: start: 19830101, end: 19830601
  2. ACCUTANE [Suspect]
     Route: 065
     Dates: start: 1984, end: 1985

REACTIONS (7)
  - Crohn^s disease [Unknown]
  - Intestinal obstruction [Unknown]
  - Gastrointestinal injury [Unknown]
  - Colitis [Unknown]
  - Inflammatory bowel disease [Unknown]
  - Large intestinal stenosis [Unknown]
  - Depression [Unknown]
